FAERS Safety Report 7743638-6 (Version None)
Quarter: 2011Q3

REPORT INFORMATION
  Report Type: 
  Country: None (occurrence: None)
  Receive Date: 20110912
  Receipt Date: 20110901
  Transmission Date: 20111222
  Serious: Yes (Hospitalization, Other)
  Sender: FDA-Public Use
  Company Number: US-US-EMD SERONO, INC.-7080737

PATIENT
  Sex: Female
  Weight: 77 kg

DRUGS (2)
  1. CHOLESTEROL MEDICATION [Concomitant]
     Indication: BLOOD CHOLESTEROL
  2. REBIF [Suspect]
     Indication: PRODUCT USED FOR UNKNOWN INDICATION
     Route: 058
     Dates: start: 20080205

REACTIONS (9)
  - VIRAL INFECTION [None]
  - LIVER FUNCTION TEST ABNORMAL [None]
  - WHITE BLOOD CELL COUNT DECREASED [None]
  - NASOPHARYNGITIS [None]
  - PAIN IN EXTREMITY [None]
  - INJECTION SITE PAIN [None]
  - ATRIAL FIBRILLATION [None]
  - INJECTION SITE HAEMORRHAGE [None]
  - CLOSTRIDIAL INFECTION [None]
